FAERS Safety Report 20565298 (Version 1)
Quarter: 2022Q1

REPORT INFORMATION
  Report Type: Report from Study
  Country: EG (occurrence: EG)
  Receive Date: 20220308
  Receipt Date: 20220308
  Transmission Date: 20220423
  Serious: Yes (Death, Other)
  Sender: FDA-Public Use
  Company Number: EG-BAYER-2022A031692

PATIENT

DRUGS (1)
  1. EYLEA [Suspect]
     Active Substance: AFLIBERCEPT
     Indication: Product used for unknown indication
     Dosage: TOTAL OF 8 INJECTIONS PRIOR TO THE EVENTS
     Route: 031
     Dates: start: 20200204

REACTIONS (6)
  - Death [Fatal]
  - Cardiac procedure complication [Unknown]
  - Cardiac disorder [Unknown]
  - General physical health deterioration [Unknown]
  - Catheterisation cardiac [Unknown]
  - Stent placement [Unknown]

NARRATIVE: CASE EVENT DATE: 20220101
